FAERS Safety Report 23052581 (Version 1)
Quarter: 2023Q4

REPORT INFORMATION
  Report Type: Spontaneous
  Country: IN (occurrence: IN)
  Receive Date: 20231011
  Receipt Date: 20231011
  Transmission Date: 20240109
  Serious: Yes (Other)
  Sender: FDA-Public Use
  Company Number: IN-BoehringerIngelheim-2023-BI-264868

PATIENT

DRUGS (5)
  1. LINAGLIPTIN\METFORMIN HYDROCHLORIDE [Suspect]
     Active Substance: LINAGLIPTIN\METFORMIN HYDROCHLORIDE
     Indication: Diabetes mellitus
  2. METFORMIN HYDROCHLORIDE [Suspect]
     Active Substance: METFORMIN HYDROCHLORIDE
     Indication: Product used for unknown indication
  3. GLICLAZIDE [Suspect]
     Active Substance: GLICLAZIDE
     Indication: Product used for unknown indication
  4. ROSUVASTATIN CALCIUM [Suspect]
     Active Substance: ROSUVASTATIN CALCIUM
     Indication: Product used for unknown indication
  5. ASPIRIN\CLOPIDOGREL BISULFATE [Suspect]
     Active Substance: ASPIRIN\CLOPIDOGREL BISULFATE
     Indication: Product used for unknown indication

REACTIONS (7)
  - Chest pain [Unknown]
  - Hypoaesthesia [Unknown]
  - Limb discomfort [Unknown]
  - Decreased appetite [Unknown]
  - Weight decreased [Unknown]
  - Off label use [Unknown]
  - Glycosylated haemoglobin decreased [Unknown]
